FAERS Safety Report 14626151 (Version 4)
Quarter: 2021Q2

REPORT INFORMATION
  Report Type: Spontaneous
  Country: CO (occurrence: CO)
  Receive Date: 20180312
  Receipt Date: 20210602
  Transmission Date: 20210716
  Serious: Yes (Hospitalization, Other)
  Sender: FDA-Public Use
  Company Number: CO-PFIZER INC-2018099581

PATIENT
  Age: 50 Year
  Sex: Female

DRUGS (2)
  1. XELJANZ [Suspect]
     Active Substance: TOFACITINIB CITRATE
     Dosage: 5 MG, 2X/DAY ( 1 TABLET EVERY 12 HOURS)
     Route: 048
     Dates: start: 2018, end: 202012
  2. XELJANZ [Suspect]
     Active Substance: TOFACITINIB CITRATE
     Indication: RHEUMATOID ARTHRITIS
     Dosage: 5 MG, 2X/DAY ( 1 TABLET EVERY 12 HOURS)
     Route: 048
     Dates: start: 20171226

REACTIONS (5)
  - Osteonecrosis [Recovered/Resolved]
  - Neuropathy peripheral [Not Recovered/Not Resolved]
  - Mobility decreased [Not Recovered/Not Resolved]
  - Electric shock sensation [Not Recovered/Not Resolved]
  - Infected cyst [Unknown]

NARRATIVE: CASE EVENT DATE: 20180215
